FAERS Safety Report 15903623 (Version 1)
Quarter: 2019Q1

REPORT INFORMATION
  Report Type: Spontaneous
  Country: FR (occurrence: FR)
  Receive Date: 20190203
  Receipt Date: 20190203
  Transmission Date: 20190417
  Serious: Yes (Hospitalization)
  Sender: FDA-Public Use
  Company Number: FR-ACCORD-105170

PATIENT
  Age: 26 Year
  Sex: Female
  Weight: 143.5 kg

DRUGS (6)
  1. LAMICTAL [Concomitant]
     Active Substance: LAMOTRIGINE
     Route: 048
     Dates: start: 2014
  2. TEMESTA [LORAZEPAM] [Concomitant]
     Active Substance: LORAZEPAM
     Dosage: TABLET BREACKABLE
     Route: 048
     Dates: start: 2014
  3. CLOZAPINE. [Concomitant]
     Active Substance: CLOZAPINE
     Route: 048
     Dates: start: 2014
  4. VALPROIC ACID. [Concomitant]
     Active Substance: VALPROIC ACID
     Route: 048
     Dates: start: 2014
  5. ARIPIPRAZOLE. [Suspect]
     Active Substance: ARIPIPRAZOLE
     Indication: ABNORMAL BEHAVIOUR
     Route: 048
     Dates: start: 20171212, end: 20180302
  6. LOXAPINE. [Concomitant]
     Active Substance: LOXAPINE
     Route: 048

REACTIONS (3)
  - Epilepsy [Recovering/Resolving]
  - Anxiety [Recovering/Resolving]
  - Hallucination, auditory [Recovering/Resolving]

NARRATIVE: CASE EVENT DATE: 201801
